FAERS Safety Report 6274764-9 (Version None)
Quarter: 2009Q3

REPORT INFORMATION
  Report Type: 
  Country: None (occurrence: None)
  Receive Date: 20090721
  Receipt Date: 20070827
  Transmission Date: 20100115
  Serious: Yes (Other)
  Sender: FDA-Public Use
  Company Number: US-ASTRAZENECA-2006UW11215

PATIENT
  Age: 45 Year
  Sex: Female
  Weight: 126.1 kg

DRUGS (12)
  1. SEROQUEL [Suspect]
     Indication: SCHIZOPHRENIA
     Route: 048
     Dates: start: 20050301
  2. SEROQUEL [Suspect]
     Indication: DEPRESSION
     Route: 048
     Dates: start: 20050301
  3. SEROQUEL [Suspect]
     Indication: BIPOLAR DISORDER
     Route: 048
     Dates: start: 20050301
  4. SEROQUEL [Suspect]
     Dosage: 25 - 400 MG
     Route: 048
     Dates: start: 20050331
  5. SEROQUEL [Suspect]
     Dosage: 25 - 400 MG
     Route: 048
     Dates: start: 20050331
  6. SEROQUEL [Suspect]
     Dosage: 25 - 400 MG
     Route: 048
     Dates: start: 20050331
  7. DEXATRIM [Concomitant]
     Indication: WEIGHT CONTROL
     Dates: start: 19950101
  8. GEODON [Concomitant]
     Dates: start: 20050101
  9. PROZAC [Concomitant]
     Dates: start: 20050101
  10. PAROXETINE HCL [Concomitant]
     Route: 048
     Dates: start: 20050330
  11. DIVALPROEX SODIUM [Concomitant]
     Route: 048
     Dates: start: 20050426
  12. GUAIFENESIN [Concomitant]
     Indication: COUGH
     Dosage: 100 MG / 5 ML, TWO TABLE SPOON DAILY
     Route: 048
     Dates: start: 20050428

REACTIONS (5)
  - DIABETES MELLITUS [None]
  - DIABETIC KETOACIDOSIS [None]
  - DIABETIC NEUROPATHY [None]
  - PANCREATITIS [None]
  - TYPE 2 DIABETES MELLITUS [None]
